FAERS Safety Report 10174095 (Version 1)
Quarter: 2014Q2

REPORT INFORMATION
  Report Type: Spontaneous
  Country: CN (occurrence: CN)
  Receive Date: 20140515
  Receipt Date: 20140515
  Transmission Date: 20141212
  Serious: Yes (Death)
  Sender: FDA-Public Use
  Company Number: CN-BAYER-2014-066619

PATIENT
  Age: 56 Year
  Sex: Male

DRUGS (2)
  1. ACETYLSALICYLIC ACID (} 100 MG) [Suspect]
     Indication: HEADACHE
     Dosage: 2 DF, UNK
     Route: 048
     Dates: start: 20130424
  2. ACETYLSALICYLIC ACID (} 100 MG) [Suspect]
     Indication: PYREXIA

REACTIONS (1)
  - Aspirin-exacerbated respiratory disease [Fatal]
